FAERS Safety Report 23108410 (Version 2)
Quarter: 2024Q4

REPORT INFORMATION
  Report Type: Spontaneous
  Country: US (occurrence: US)
  Receive Date: 20231026
  Receipt Date: 20241008
  Transmission Date: 20250114
  Serious: Yes (Disabling, Other)
  Sender: NOVARTIS
  Company Number: US-002147023-NVSC2023US228235

PATIENT
  Age: 70 Year
  Sex: Male
  Weight: 77.85 kg

DRUGS (2)
  1. LEQVIO [Suspect]
     Active Substance: INCLISIRAN SODIUM
     Indication: Hyperlipidaemia
     Dosage: 284 MG (Q6 MONTHS)
     Route: 058
     Dates: start: 20230713, end: 20230713
  2. KEFLEX [Concomitant]
     Active Substance: CEPHALEXIN
     Indication: Prophylaxis
     Dosage: UNK
     Route: 065
     Dates: start: 20230914

REACTIONS (3)
  - Cellulitis gangrenous [Recovering/Resolving]
  - Skin ulcer [Recovering/Resolving]
  - Pain in extremity [Unknown]

NARRATIVE: CASE EVENT DATE: 20230913
